FAERS Safety Report 8556215-4 (Version None)
Quarter: 2012Q3

REPORT INFORMATION
  Report Type: 
  Country: None (occurrence: None)
  Receive Date: 20120801
  Receipt Date: 20120727
  Transmission Date: 20120928
  Serious: No
  Sender: FDA-Public Use
  Company Number: US-TEVA-351157USA

PATIENT
  Sex: Female
  Weight: 118.04 kg

DRUGS (2)
  1. LASIX [Concomitant]
     Dates: start: 20120725
  2. NUVIGIL [Suspect]
     Indication: SLEEP APNOEA SYNDROME
     Route: 048
     Dates: start: 20120725

REACTIONS (1)
  - DRUG INEFFECTIVE [None]
